FAERS Safety Report 13882470 (Version 2)
Quarter: 2017Q3

REPORT INFORMATION
  Report Type: Spontaneous
  Country: US (occurrence: US)
  Receive Date: 20170818
  Receipt Date: 20170824
  Transmission Date: 20171127
  Serious: Yes (Death)
  Sender: FDA-Public Use
  Company Number: US-BAUSCH-BL-2017-022457

PATIENT
  Age: 33 Year
  Sex: Male

DRUGS (4)
  1. SYPRINE [Suspect]
     Active Substance: TRIENTINE HYDROCHLORIDE
     Indication: HEPATO-LENTICULAR DEGENERATION
     Dosage: ABOUT 4-5 MONTHS PRIOR TO APR/2017, 2 CAPSULES IN THE MORNING AND 2 CAPSULES AT NIGHT
     Route: 048
     Dates: start: 2017
  2. SYPRINE [Suspect]
     Active Substance: TRIENTINE HYDROCHLORIDE
     Dosage: DOSE REDUCED TO 2 CAPSULES IN MORNING AND ONE CAPSULE AT NIGHT DAILY
     Route: 048
     Dates: start: 201705
  3. DILAUDID [Concomitant]
     Active Substance: HYDROMORPHONE HYDROCHLORIDE
     Route: 048
     Dates: start: 201706
  4. DILAUDID [Concomitant]
     Active Substance: HYDROMORPHONE HYDROCHLORIDE
     Route: 042
     Dates: start: 201704

REACTIONS (2)
  - Hospice care [Recovered/Resolved]
  - Hepato-lenticular degeneration [Fatal]

NARRATIVE: CASE EVENT DATE: 20170520
